FAERS Safety Report 22019932 (Version 1)
Quarter: 2023Q1

REPORT INFORMATION
  Report Type: Spontaneous
  Country: US (occurrence: None)
  Receive Date: 20230217
  Receipt Date: 20230217
  Transmission Date: 20230418
  Serious: No
  Sender: FDA-Public Use
  Company Number: None

PATIENT
  Age: 15 Year
  Sex: Female
  Weight: 48.6 kg

DRUGS (3)
  1. LAGEVRIO [Suspect]
     Active Substance: MOLNUPIRAVIR
     Indication: COVID-19
     Dosage: 800 MG TWICE A DAY ORAL
     Route: 048
     Dates: start: 20230215, end: 20230217
  2. PREDNISONE [Concomitant]
     Active Substance: PREDNISONE
     Dates: start: 20230215
  3. ALBUTEROL [Concomitant]
     Active Substance: ALBUTEROL
     Dates: start: 20230215

REACTIONS (1)
  - Product use issue [None]

NARRATIVE: CASE EVENT DATE: 20230215
